FAERS Safety Report 10186979 (Version 1)
Quarter: 2014Q2

REPORT INFORMATION
  Report Type: Spontaneous
  Country: US (occurrence: US)
  Receive Date: 20140522
  Receipt Date: 20140522
  Transmission Date: 20141212
  Serious: No
  Sender: FDA-Public Use
  Company Number: US-BIOGENIDEC-2014BI046097

PATIENT
  Sex: Male

DRUGS (1)
  1. AVONEX [Suspect]
     Indication: MULTIPLE SCLEROSIS
     Route: 030
     Dates: start: 20041113

REACTIONS (7)
  - Hemiparesis [Not Recovered/Not Resolved]
  - Fall [Recovered/Resolved]
  - Ankle fracture [Recovered/Resolved with Sequelae]
  - Limb injury [Recovered/Resolved]
  - Atrophy [Not Recovered/Not Resolved]
  - Gait disturbance [Not Recovered/Not Resolved]
  - Balance disorder [Not Recovered/Not Resolved]
